FAERS Safety Report 15371307 (Version 1)
Quarter: 2018Q3

REPORT INFORMATION
  Report Type: Spontaneous
  Country: US (occurrence: US)
  Receive Date: 20180911
  Receipt Date: 20180911
  Transmission Date: 20181010
  Serious: No
  Sender: FDA-Public Use
  Company Number: US-GLAXOSMITHKLINE-US2018160733

PATIENT
  Sex: Female

DRUGS (2)
  1. SORIATANE [Suspect]
     Active Substance: ACITRETIN
     Indication: LICHEN PLANUS
     Dosage: 10 MG, QD
     Route: 048
     Dates: start: 20180718
  2. SORIATANE [Suspect]
     Active Substance: ACITRETIN
     Dosage: 25 MG, QD
     Dates: start: 20180806, end: 20180825

REACTIONS (5)
  - Lip swelling [Recovering/Resolving]
  - Chapped lips [Recovering/Resolving]
  - Lip pain [Recovering/Resolving]
  - Lip exfoliation [Recovering/Resolving]
  - Product use in unapproved indication [Unknown]

NARRATIVE: CASE EVENT DATE: 20180718
